FAERS Safety Report 14745906 (Version 2)
Quarter: 2018Q4

REPORT INFORMATION
  Report Type: Spontaneous
  Country: US (occurrence: US)
  Receive Date: 20180411
  Receipt Date: 20181219
  Transmission Date: 20190204
  Serious: Yes (Other)
  Sender: FDA-Public Use
  Company Number: US-GLAXOSMITHKLINE-US2018GSK061035

PATIENT
  Sex: Male

DRUGS (2)
  1. PREVACID [Suspect]
     Active Substance: LANSOPRAZOLE
     Indication: PRODUCT USED FOR UNKNOWN INDICATION
     Dosage: UNK
     Route: 065
  2. PREVACID [Suspect]
     Active Substance: LANSOPRAZOLE
     Indication: DYSPEPSIA
     Dosage: 15 MG, QD
     Route: 065

REACTIONS (9)
  - Chronic kidney disease [Unknown]
  - Prerenal failure [Unknown]
  - Nephropathy [Unknown]
  - Renal failure [Unknown]
  - Single functional kidney [Unknown]
  - Proteinuria [Unknown]
  - Acute kidney injury [Unknown]
  - Renal cyst [Unknown]
  - Hydronephrosis [Unknown]
